FAERS Safety Report 8482908-3 (Version None)
Quarter: 2012Q3

REPORT INFORMATION
  Report Type: 
  Country: None (occurrence: None)
  Receive Date: 20120702
  Receipt Date: 20120622
  Transmission Date: 20120928
  Serious: Yes (Other)
  Sender: FDA-Public Use
  Company Number: US-ELI_LILLY_AND_COMPANY-US201206005541

PATIENT
  Sex: Female

DRUGS (2)
  1. FORTEO [Suspect]
     Indication: OSTEOPOROSIS
     Dosage: UNK
     Dates: start: 20120510
  2. FORTEO [Suspect]
     Dosage: 20 UG, UNK

REACTIONS (4)
  - HEADACHE [None]
  - SURGERY [None]
  - DRUG DOSE OMISSION [None]
  - INJECTION SITE PAIN [None]
